FAERS Safety Report 10005322 (Version 1)
Quarter: 2014Q1

REPORT INFORMATION
  Report Type: Spontaneous
  Country: GB (occurrence: GB)
  Receive Date: 20140312
  Receipt Date: 20140312
  Transmission Date: 20141002
  Serious: Yes (Congenital Anomaly)
  Sender: FDA-Public Use
  Company Number: GB-MYLANLABS-2014S1004776

PATIENT
  Sex: 0

DRUGS (5)
  1. MORPHINE [Suspect]
     Indication: ABDOMINAL PAIN
     Route: 064
  2. MORPHINE [Suspect]
     Indication: ABDOMINAL PAIN
     Dosage: PATIENT CONTROLLED ANALGESIA; 250MG EVERY 24H (3MG/H BACKGROUND, 2MG BOLUS)
     Route: 064
  3. OXYNORM [Suspect]
     Indication: ABDOMINAL PAIN
     Dosage: 50MG EVERY 2-4 HOURS
     Route: 064
  4. KETAMINE [Concomitant]
     Indication: ANALGESIC THERAPY
     Route: 064
  5. CLONIDINE [Concomitant]
     Indication: ANALGESIC THERAPY
     Route: 064

REACTIONS (3)
  - Drug withdrawal syndrome neonatal [Unknown]
  - Renal cyst [Unknown]
  - Foetal exposure during pregnancy [Unknown]
